FAERS Safety Report 19536379 (Version 3)
Quarter: 2021Q3

REPORT INFORMATION
  Report Type: Spontaneous
  Country: CA (occurrence: CA)
  Receive Date: 20210713
  Receipt Date: 20210904
  Transmission Date: 20211014
  Serious: Yes (Other)
  Sender: FDA-Public Use
  Company Number: CA-ACCORD-188871

PATIENT
  Age: 57 Year
  Sex: Female

DRUGS (7)
  1. FOLIC ACID. [Concomitant]
     Active Substance: FOLIC ACID
     Dosage: EVERY 1 DAYS
     Route: 048
  2. OXALIPLATIN. [Suspect]
     Active Substance: OXALIPLATIN
     Indication: COLON CANCER STAGE III
     Dosage: SEVEN CYCLES, 21?DAY CYCLE
     Route: 042
  3. DEXAMETHASONE. [Concomitant]
     Active Substance: DEXAMETHASONE
     Dosage: TAKEN ORALLY TWICE DAILY FOR THREE DAYS STARTING THE DAY PRIOR TO CHEMOTHERAPY
     Route: 048
  4. ONDANSETRON [Concomitant]
     Active Substance: ONDANSETRON
     Dosage: ONE TABLET TAKEN ORALLY 30?60 MIN PRIOR AND A SECOND TABLET TAKEN AT BEDTIME
     Route: 048
  5. PEMETREXED. [Suspect]
     Active Substance: PEMETREXED
     Indication: COLON CANCER STAGE III
     Dosage: SEVEN CYCLES, 21?DAY CYCLES
     Route: 042
  6. CYANOCOBALAMIN. [Concomitant]
     Active Substance: CYANOCOBALAMIN
     Dosage: ONE TO TWO WEEKS PRIOR TO PEMETREXED INJECTED EVERY NINE WEEKS
     Route: 030
  7. METOCLOPRAMIDE. [Concomitant]
     Active Substance: METOCLOPRAMIDE
     Indication: VOMITING
     Dosage: EVERY 4 H
     Route: 048

REACTIONS (8)
  - Mouth ulceration [Recovered/Resolved]
  - Neuropathy peripheral [Recovered/Resolved]
  - Papillary cystadenoma lymphomatosum [Recovered/Resolved]
  - Fatigue [Recovered/Resolved]
  - Pruritus [Recovered/Resolved]
  - Dysaesthesia [Recovered/Resolved]
  - Off label use [Unknown]
  - Rash maculo-papular [Recovered/Resolved]
